FAERS Safety Report 6104158-8 (Version None)
Quarter: 2009Q1

REPORT INFORMATION
  Report Type: 
  Country: None (occurrence: None)
  Receive Date: 20090305
  Receipt Date: 20090303
  Transmission Date: 20090719
  Serious: Yes (Death, Other)
  Sender: FDA-Public Use
  Company Number: PHEH2008US11107

PATIENT
  Age: 74 Year
  Sex: Male

DRUGS (2)
  1. ZOMETA [Suspect]
     Indication: METASTASES TO BONE
     Dosage: 4 MG IV Q6 MONTHS
     Dates: start: 20080303, end: 20080303
  2. LUPRON [Concomitant]
     Indication: PROSTATE CANCER
     Dosage: Q4 MONTHS

REACTIONS (6)
  - DEEP VEIN THROMBOSIS [None]
  - HYPERTENSION [None]
  - METASTASES TO BLADDER [None]
  - METASTASES TO LUNG [None]
  - PAIN [None]
  - PROSTATE CANCER METASTATIC [None]
